FAERS Safety Report 4941055-5 (Version None)
Quarter: 2006Q1

REPORT INFORMATION
  Report Type: 
  Country: None (occurrence: None)
  Receive Date: 20060313
  Receipt Date: 20060306
  Transmission Date: 20060701
  Serious: Yes (Death, Hospitalization)
  Sender: FDA-Public Use
  Company Number: PHHO2006AR03969

PATIENT
  Age: 82 Year
  Sex: Male

DRUGS (1)
  1. DIOVAN [Suspect]
     Dates: end: 20060101

REACTIONS (5)
  - DYSPNOEA [None]
  - FATIGUE [None]
  - PNEUMONIA [None]
  - PROSTATIC DISORDER [None]
  - RENAL DISORDER [None]
